FAERS Safety Report 19461090 (Version 4)
Quarter: 2021Q3

REPORT INFORMATION
  Report Type: Other
  Country: JP (occurrence: JP)
  Receive Date: 20210625
  Receipt Date: 20210928
  Transmission Date: 20211014
  Serious: Yes (Death, Hospitalization, Other)
  Sender: FDA-Public Use
  Company Number: JP-ROCHE-2835835

PATIENT
  Age: 63 Year
  Sex: Male

DRUGS (6)
  1. SATRALIZUMAB. [Suspect]
     Active Substance: SATRALIZUMAB
     Route: 058
     Dates: start: 20210319, end: 20210319
  2. PREDONINE [Suspect]
     Active Substance: PREDNISOLONE
     Indication: NEUROMYELITIS OPTICA SPECTRUM DISORDER
     Route: 048
  3. SATRALIZUMAB. [Suspect]
     Active Substance: SATRALIZUMAB
     Indication: NEUROMYELITIS OPTICA SPECTRUM DISORDER
     Route: 058
     Dates: start: 20201225, end: 20201225
  4. SATRALIZUMAB. [Suspect]
     Active Substance: SATRALIZUMAB
     Route: 058
     Dates: start: 20210121, end: 20210121
  5. SATRALIZUMAB. [Suspect]
     Active Substance: SATRALIZUMAB
     Route: 058
     Dates: start: 20210107, end: 20210107
  6. SATRALIZUMAB. [Suspect]
     Active Substance: SATRALIZUMAB
     Route: 058
     Dates: start: 20210416, end: 20210416

REACTIONS (6)
  - Gastrointestinal haemorrhage [Fatal]
  - Spinal osteoarthritis [Recovered/Resolved]
  - Urinary tract infection [Recovered/Resolved]
  - Infection [Unknown]
  - Renal impairment [Not Recovered/Not Resolved]
  - Pneumonia aspiration [Recovered/Resolved]

NARRATIVE: CASE EVENT DATE: 2021
